FAERS Safety Report 15100255 (Version 1)
Quarter: 2018Q3

REPORT INFORMATION
  Report Type: Spontaneous
  Country: AU (occurrence: AU)
  Receive Date: 20180703
  Receipt Date: 20180703
  Transmission Date: 20181010
  Serious: Yes (Hospitalization, Other)
  Sender: FDA-Public Use
  Company Number: AU-EDENBRIDGE PHARMACEUTICALS, LLC-AU-2018EDE000215

PATIENT
  Age: 57 Year
  Sex: Female
  Weight: 128 kg

DRUGS (12)
  1. METHYLPREDNISOLONE. [Suspect]
     Active Substance: METHYLPREDNISOLONE
     Indication: PYODERMA GANGRENOSUM
     Dosage: UNK
     Route: 042
  2. ADALIMUMAB [Suspect]
     Active Substance: ADALIMUMAB
     Indication: PYODERMA GANGRENOSUM
     Dosage: UNK
  3. IMMUNOGLOBULIN                     /00025201/ [Concomitant]
     Active Substance: HUMAN IMMUNOGLOBULIN G
     Indication: PYODERMA GANGRENOSUM
     Dosage: UNK, MONTHLY
     Route: 042
  4. PREDNISOLONE SODIUM PHOSPHATE. [Suspect]
     Active Substance: PREDNISOLONE SODIUM PHOSPHATE
     Indication: PYODERMA GANGRENOSUM
     Dosage: 37.5 MG, QD
     Route: 048
  5. PENTOXIFYLLINE. [Suspect]
     Active Substance: PENTOXIFYLLINE
     Indication: PYODERMA GANGRENOSUM
     Dosage: UNK
  6. PREDNISOLONE SODIUM PHOSPHATE. [Suspect]
     Active Substance: PREDNISOLONE SODIUM PHOSPHATE
     Dosage: 10 MG, QD
     Route: 048
  7. CYCLOSPORIN [Suspect]
     Active Substance: CYCLOSPORINE
     Indication: PYODERMA GANGRENOSUM
     Dosage: UNK
  8. DAPSONE. [Concomitant]
     Active Substance: DAPSONE
     Indication: PYODERMA GANGRENOSUM
     Dosage: 200 MG, QD
  9. AZATHIOPRINE. [Suspect]
     Active Substance: AZATHIOPRINE
     Indication: PYODERMA GANGRENOSUM
     Dosage: UNK
  10. INFLIXIMAB [Suspect]
     Active Substance: INFLIXIMAB
     Indication: PYODERMA GANGRENOSUM
     Dosage: UNK
  11. MYCOPHENOLATE MOFETIL. [Suspect]
     Active Substance: MYCOPHENOLATE MOFETIL
     Indication: PYODERMA GANGRENOSUM
     Dosage: 1.5 MG, BID
  12. DAPSONE. [Concomitant]
     Active Substance: DAPSONE
     Dosage: 100 MG, QD

REACTIONS (5)
  - Pseudomonas infection [Unknown]
  - Klebsiella infection [Unknown]
  - Cellulitis [Unknown]
  - Sepsis [Unknown]
  - Osteonecrosis [Unknown]
